FAERS Safety Report 17418834 (Version 1)
Quarter: 2020Q1

REPORT INFORMATION
  Report Type: Spontaneous
  Country: CH (occurrence: CH)
  Receive Date: 20200214
  Receipt Date: 20200214
  Transmission Date: 20200409
  Serious: Yes (Life-Threatening, Other)
  Sender: FDA-Public Use
  Company Number: CH-009507513-2002CHE003669

PATIENT
  Age: 66 Year
  Sex: Female
  Weight: 130 kg

DRUGS (15)
  1. GLIMEPIRIDE SANDOZ [Concomitant]
     Active Substance: GLIMEPIRIDE
     Dosage: 2 MILLIGRAM, QD; AFTER DISCHARGE FROM HOSPITAL ON 09-JAN-2020, FROM AN UNKNOWN START DATE UNTIL FURT
     Route: 048
  2. TAMSULOSIN SANDOZ [Concomitant]
     Active Substance: TAMSULOSIN
     Dosage: 0.4 MILLIGRAM, QD;  AFTER DISCHARGE FROM HOSPITAL ON 09-JAN-2020, FROM AN UNKNOWN START DATE UNTIL F
     Route: 048
  3. BRIDION [Suspect]
     Active Substance: SUGAMMADEX
     Indication: NEUROMUSCULAR BLOCKADE REVERSAL
     Dosage: 600 MG, IN TOTAL
     Route: 042
     Dates: start: 20200106, end: 20200106
  4. ELTROXIN [Concomitant]
     Active Substance: LEVOTHYROXINE
     Dosage: 0.1 MILLIGRAM, QD; AFTER DISCHARGE FROM HOSPITAL ON 09-JAN-2020, FROM AN UNKNOWN START DATE UNTIL FU
     Route: 048
  5. CONDROSULF [Concomitant]
     Active Substance: SODIUM CHONDROITIN SULFATE
     Dosage: 800 MG, ONCE DAILY AS NECESSARY; AFTER DISCHARGE FROM HOSPITAL ON 09-JAN-2020, FROM AN UNKNOWN START
     Route: 048
  6. METFIN [Concomitant]
     Active Substance: METFORMIN HYDROCHLORIDE
     Dosage: 1000 MG, EVERY 12 HOURS; AFTER DISCHARGE FROM HOSPITAL ON 09-JAN-2020, FROM AN UNKNOWN START DATE UN
     Route: 048
  7. LAXOBERON [Concomitant]
     Active Substance: SODIUM PICOSULFATE
     Indication: CONSTIPATION
     Dosage: 15 DROP DAILY AS NECESSARY; AFTER DISCHARGE FROM HOSPITAL ON 09-JAN-2020, FROM AN UNKNOWN START DATE
     Route: 048
  8. PROSTAPLANT (SAW PALMETTO) [Concomitant]
     Dosage: 1 CAPSULE, EVERY 12 HOURS; AFTER DISCHARGE FROM HOSPITAL ON 09-JAN-2020, FROM AN UNKNOWN START DATE
     Route: 048
  9. TARGIN [Concomitant]
     Active Substance: NALOXONE HYDROCHLORIDE\OXYCODONE HYDROCHLORIDE
     Dosage: UNK, Q12H; AFTER DISCHARGE FROM HOSPITAL ON 09-JAN-2020, FROM AN UNKNOWN START DATE UNTIL FURTHER NO
     Route: 048
  10. OXYNORM [Concomitant]
     Active Substance: OXYCODONE HYDROCHLORIDE
     Indication: PAIN
     Dosage: 5 MG, AS NECESSARY; AFTER DISCHARGE FROM HOSPITAL ON 09-JAN-2020, FROM AN UNKNOWN START DATE UNTIL F
     Route: 048
  11. ESOMEP [Concomitant]
     Active Substance: ESOMEPRAZOLE
     Dosage: 40 MILLIGRAM, QD; AFTER DISCHARGE FROM HOSPITAL ON 09-JAN-2020, FROM AN UNKNOWN START DATE UNTIL FUR
     Route: 048
  12. NORMACOL [Concomitant]
     Active Substance: HERBALS\KARAYA GUM
     Dosage: 1 TABLESPOONS, AS NECESSARY; AFTER DISCHARGE FROM HOSPITAL ON 09-JAN-2020, FROM AN UNKNOWN START DAT
     Route: 048
  13. NOVALGIN (DIPYRONE) [Concomitant]
     Active Substance: DIPYRONE
     Dosage: 1000 MG, EVERY 6 HOURS (ALSO REPORTED AS 500 MG TABLETS 8 DAILY); AFTER DISCHARGE FROM HOSPITAL ON 0
     Route: 048
  14. CATAPRESAN [Concomitant]
     Active Substance: CLONIDINE
     Dosage: 75 MICROGRAM, QD; AFTER DISCHARGE FROM HOSPITAL ON 09-JAN-2020, FROM AN UNKNOWN START DATE UNTIL FUR
     Route: 048
  15. ALLOPUR [Concomitant]
     Active Substance: ALLOPURINOL
     Dosage: 300 MILLIGRAM, ONCE DAILY WHEN NEEDED; AFTER DISCHARGE FROM HOSPITAL ON 09-JAN-2020, FROM AN UNKNOWN
     Route: 048

REACTIONS (4)
  - Oxygen saturation decreased [Recovered/Resolved]
  - Type I hypersensitivity [Recovered/Resolved]
  - Hypotension [Recovered/Resolved]
  - Bradycardia [Recovered/Resolved]

NARRATIVE: CASE EVENT DATE: 20200106
